FAERS Safety Report 7272315-3 (Version None)
Quarter: 2011Q1

REPORT INFORMATION
  Report Type: 
  Country: None (occurrence: None)
  Receive Date: 20110203
  Receipt Date: 20110128
  Transmission Date: 20110831
  Serious: Yes (Death, Hospitalization, Other)
  Sender: FDA-Public Use
  Company Number: PHHY2011EC07316

PATIENT
  Sex: Male

DRUGS (2)
  1. EXELON [Suspect]
     Indication: DEMENTIA ALZHEIMER'S TYPE
     Dosage: 4.5 MG, QD
     Route: 062
     Dates: start: 20091001, end: 20100207
  2. ENALAPRIL MALEATE [Concomitant]
     Dosage: UNK

REACTIONS (2)
  - GENERAL PHYSICAL CONDITION ABNORMAL [None]
  - HYPERTENSION [None]
